FAERS Safety Report 20024514 (Version 4)
Quarter: 2022Q3

REPORT INFORMATION
  Report Type: Spontaneous
  Country: US (occurrence: US)
  Receive Date: 20211102
  Receipt Date: 20220708
  Transmission Date: 20221026
  Serious: Yes (Hospitalization, Other)
  Sender: FDA-Public Use
  Company Number: US-PFIZER INC-2019293118

PATIENT
  Age: 83 Year
  Sex: Female
  Weight: 61.23 kg

DRUGS (4)
  1. NORPACE [Suspect]
     Active Substance: DISOPYRAMIDE PHOSPHATE
     Indication: Cardiomyopathy
     Dosage: 1 DF, 3X/DAY (TAKE ONE CAPSULE 3 TIMES DAILY)
     Route: 048
  2. NORPACE [Suspect]
     Active Substance: DISOPYRAMIDE PHOSPHATE
     Dosage: 150 MG (QUANTITY FOR 90 DAYS: 270; 4 TIMES A YEAR)
  3. NORPACE [Suspect]
     Active Substance: DISOPYRAMIDE PHOSPHATE
     Dosage: 100 MG, 2X/DAY
     Route: 048
  4. NORPACE [Suspect]
     Active Substance: DISOPYRAMIDE PHOSPHATE
     Dosage: 100 MG

REACTIONS (3)
  - Gastric ulcer [Unknown]
  - Gastrointestinal haemorrhage [Unknown]
  - Off label use [Unknown]
